FAERS Safety Report 22124688 (Version 1)
Quarter: 2023Q1

REPORT INFORMATION
  Report Type: Spontaneous
  Country: US (occurrence: US)
  Receive Date: 20230322
  Receipt Date: 20230322
  Transmission Date: 20230418
  Serious: No
  Sender: FDA-Public Use
  Company Number: US-CURRAX PHARMACEUTICALS LLC-US-2022CUR022493

PATIENT
  Sex: Female

DRUGS (1)
  1. ONZETRA XSAIL [Suspect]
     Active Substance: SUMATRIPTAN SUCCINATE
     Indication: Product used for unknown indication
     Dosage: UNK
     Route: 045

REACTIONS (5)
  - Nausea [Unknown]
  - Pain [Unknown]
  - Migraine [Unknown]
  - Headache [Unknown]
  - Prescription drug used without a prescription [Unknown]
